FAERS Safety Report 11145119 (Version 2)
Quarter: 2015Q3

REPORT INFORMATION
  Report Type: Spontaneous
  Country: CO (occurrence: CO)
  Receive Date: 20150526
  Receipt Date: 20150730
  Transmission Date: 20151125
  Serious: Yes (Death, Other)
  Sender: FDA-Public Use
  Company Number: CO-JNJFOC-20150516380

PATIENT
  Age: 58 Year
  Sex: Male

DRUGS (1)
  1. REMICADE [Suspect]
     Active Substance: INFLIXIMAB
     Indication: ANKYLOSING SPONDYLITIS
     Route: 042
     Dates: start: 20130313, end: 20150108

REACTIONS (4)
  - Cerebral thrombosis [Fatal]
  - Fall [Unknown]
  - Cerebral infarction [Fatal]
  - Quadriplegia [Unknown]

NARRATIVE: CASE EVENT DATE: 20150107
